FAERS Safety Report 5531025-0 (Version None)
Quarter: 2007Q4

REPORT INFORMATION
  Report Type: 
  Country: None (occurrence: None)
  Receive Date: 20071130
  Receipt Date: 20071120
  Transmission Date: 20080405
  Serious: Yes (Other)
  Sender: FDA-Public Use
  Company Number: US-PFIZER INC-2007097731

PATIENT
  Sex: Male
  Weight: 129.54 kg

DRUGS (8)
  1. CHANTIX [Suspect]
     Indication: SMOKING CESSATION THERAPY
  2. CRESTOR [Concomitant]
  3. HYDROCHLOROTHIAZIDE [Concomitant]
  4. FELODIPINE [Concomitant]
  5. ECOTRIN [Concomitant]
  6. LABETALOL HCL [Concomitant]
  7. LISINOPRIL [Concomitant]
  8. PLAVIX [Concomitant]

REACTIONS (2)
  - BACK PAIN [None]
  - PROTEINURIA [None]
